FAERS Safety Report 13421800 (Version 1)
Quarter: 2017Q2

REPORT INFORMATION
  Report Type: Spontaneous
  Country: US (occurrence: US)
  Receive Date: 20170410
  Receipt Date: 20170410
  Transmission Date: 20170830
  Serious: Yes (Other)
  Sender: FDA-Public Use
  Company Number: US-SUN PHARMACEUTICAL INDUSTRIES LTD-2017US-137243

PATIENT
  Age: 53 Year
  Sex: Male

DRUGS (10)
  1. BUPROPION-XL [Concomitant]
     Indication: OBSESSIVE-COMPULSIVE DISORDER
     Dosage: 450 MG, DAILY
     Route: 065
  2. GABAPENTIN. [Concomitant]
     Active Substance: GABAPENTIN
     Indication: OBSESSIVE-COMPULSIVE DISORDER
  3. QUETIAPINE. [Suspect]
     Active Substance: QUETIAPINE
     Indication: MAJOR DEPRESSION
  4. BENZTROPINE [Concomitant]
     Active Substance: BENZTROPINE
     Indication: PRODUCT USED FOR UNKNOWN INDICATION
     Dosage: 2 MG, DAILY
     Route: 065
  5. BUPROPION-XL [Concomitant]
     Indication: SOCIAL ANXIETY DISORDER
     Dosage: 450 MG, DAILY
     Route: 065
  6. BUPROPION-XL [Concomitant]
     Indication: MAJOR DEPRESSION
     Dosage: 300 MG, DAILY
     Route: 065
  7. QUETIAPINE. [Suspect]
     Active Substance: QUETIAPINE
     Indication: OBSESSIVE-COMPULSIVE DISORDER
  8. GABAPENTIN. [Concomitant]
     Active Substance: GABAPENTIN
     Indication: MAJOR DEPRESSION
     Dosage: 1200 MG, DAILY
     Route: 065
  9. QUETIAPINE. [Suspect]
     Active Substance: QUETIAPINE
     Indication: SOCIAL ANXIETY DISORDER
     Dosage: NIGHTLY
     Route: 065
  10. GABAPENTIN. [Concomitant]
     Active Substance: GABAPENTIN
     Indication: SOCIAL ANXIETY DISORDER

REACTIONS (1)
  - Oculogyric crisis [Recovering/Resolving]
